FAERS Safety Report 6534039-7 (Version None)
Quarter: 2010Q1

REPORT INFORMATION
  Report Type: 
  Country: None (occurrence: None)
  Receive Date: 20100112
  Receipt Date: 20100106
  Transmission Date: 20100710
  Serious: Yes (Hospitalization)
  Sender: FDA-Public Use
  Company Number: AR-SANOFI-AVENTIS-2010SA000942

PATIENT
  Age: 96 Year
  Sex: Female

DRUGS (12)
  1. INSULIN GLARGINE [Suspect]
     Indication: TYPE 1 DIABETES MELLITUS
     Route: 058
     Dates: start: 20090101
  2. SOLOSTAR [Suspect]
     Indication: TYPE 1 DIABETES MELLITUS
     Route: 058
     Dates: start: 20090101
  3. GLICLAZIDA WINTHROP [Concomitant]
     Route: 048
  4. ASPIRIN [Concomitant]
     Route: 048
  5. INSULIN [Concomitant]
     Route: 058
     Dates: end: 20091226
  6. ESOMEPRAZOLE MAGNESIUM [Concomitant]
     Route: 048
  7. PAROXETINA WINTHROP [Concomitant]
     Route: 048
  8. IRON [Concomitant]
     Route: 048
  9. ENALAPRIL [Concomitant]
     Route: 048
  10. MELATONIN [Concomitant]
     Indication: SLEEP DISORDER
  11. BROMAZEPAM [Concomitant]
     Indication: SLEEP DISORDER
  12. NOVORAPID [Concomitant]
     Route: 058
     Dates: start: 20091227

REACTIONS (3)
  - CARDIAC FAILURE [None]
  - DYSPNOEA [None]
  - HYPOGLYCAEMIA [None]
